FAERS Safety Report 8951685 (Version 2)
Quarter: 2015Q2

REPORT INFORMATION
  Report Type: Report from Study
  Country: FR (occurrence: FR)
  Receive Date: 20121204
  Receipt Date: 20150406
  Transmission Date: 20150821
  Serious: Yes (Death, Hospitalization)
  Sender: FDA-Public Use
  Company Number: FR-ROCHE-1163233

PATIENT
  Age: 72 Year
  Sex: Male

DRUGS (3)
  1. RITUXIMAB [Suspect]
     Active Substance: RITUXIMAB
     Indication: RHEUMATOID ARTHRITIS
     Route: 042
     Dates: start: 20060405, end: 20060809
  2. CORTANCYL [Concomitant]
     Active Substance: PREDNISONE
     Route: 065
  3. HYDROXYCHLOROQUINE [Concomitant]
     Active Substance: HYDROXYCHLOROQUINE

REACTIONS (10)
  - Bacterial test positive [Recovered/Resolved]
  - Urinary tract infection bacterial [Recovered/Resolved]
  - Bronchopneumonia [Recovered/Resolved]
  - Diabetes mellitus [Fatal]
  - Pseudomonal sepsis [Recovered/Resolved]
  - Urinary tract infection pseudomonal [Recovered/Resolved]
  - Infection [Fatal]
  - Haematoma infection [Recovered/Resolved]
  - Urinary tract infection [Recovered/Resolved]
  - Transitional cell carcinoma [Unknown]

NARRATIVE: CASE EVENT DATE: 20070219
